APPROVED DRUG PRODUCT: THALLOUS CHLORIDE TL 201
Active Ingredient: THALLOUS CHLORIDE TL-201
Strength: 1mCi/ML
Dosage Form/Route: INJECTABLE;INJECTION
Application: N018548 | Product #001
Applicant: BRACCO DIAGNOSTICS INC
Approved: Dec 30, 1982 | RLD: No | RS: No | Type: DISCN